FAERS Safety Report 9632766 (Version 4)
Quarter: 2014Q1

REPORT INFORMATION
  Report Type: Spontaneous
  Country: US (occurrence: US)
  Receive Date: 20131018
  Receipt Date: 20140317
  Transmission Date: 20141002
  Serious: Yes (Disabling, Other)
  Sender: FDA-Public Use
  Company Number: US-PFIZER INC-2013297330

PATIENT
  Age: 52 Year
  Sex: Female
  Weight: 63.04 kg

DRUGS (9)
  1. LYRICA [Suspect]
     Indication: NEUROPATHY PERIPHERAL
     Dosage: 150 MG, 3X/DAY
     Route: 048
     Dates: start: 2007
  2. LYRICA [Suspect]
     Indication: FIBROMYALGIA
     Dosage: 150MG IN MORNING, 150 MG IN AFTERNOON AND 200MG IN NIGHT, 3X/DAY
     Route: 048
  3. LYRICA [Suspect]
     Dosage: UNK
  4. CLONIDINE [Concomitant]
     Dosage: UNK
  5. TRAZODONE [Concomitant]
     Indication: INSOMNIA
     Dosage: UNK
  6. TRAZODONE [Concomitant]
     Indication: HOT FLUSH
  7. PREMARIN [Concomitant]
     Indication: HOT FLUSH
     Dosage: UNK
  8. PREMPRO [Concomitant]
     Indication: HOT FLUSH
     Dosage: UNK
  9. CYMBALTA [Concomitant]
     Dosage: UNK

REACTIONS (19)
  - Intestinal ulcer [Unknown]
  - Ulcerative keratitis [Unknown]
  - Dysstasia [Unknown]
  - Gait disturbance [Unknown]
  - Arthralgia [Unknown]
  - Dysgraphia [Unknown]
  - Tremor [Unknown]
  - Stress [Unknown]
  - Movement disorder [Unknown]
  - Bone disorder [Unknown]
  - Spinal disorder [Unknown]
  - Bladder disorder [Unknown]
  - Neuropathy peripheral [Unknown]
  - Fibromyalgia [Unknown]
  - Balance disorder [Unknown]
  - Eczema [Recovered/Resolved]
  - Seborrhoeic dermatitis [Recovered/Resolved]
  - Pruritus [Recovered/Resolved]
  - Drug ineffective [Unknown]
